FAERS Safety Report 11859753 (Version 2)
Quarter: 2016Q1

REPORT INFORMATION
  Report Type: Spontaneous
  Country: JP (occurrence: JP)
  Receive Date: 20151222
  Receipt Date: 20160115
  Transmission Date: 20160526
  Serious: Yes (Hospitalization)
  Sender: FDA-Public Use
  Company Number: PHJP2015JP023030

PATIENT
  Age: 74 Year
  Sex: Male

DRUGS (4)
  1. DOPASTON [Concomitant]
     Active Substance: LEVODOPA
     Dosage: 37.5 MG, QD ((1.5 AMPOULES OF 25 MG)/DAY)
     Route: 065
  2. DOPASTON [Concomitant]
     Active Substance: LEVODOPA
     Indication: PRODUCT USED FOR UNKNOWN INDICATION
     Dosage: 25 MG, QD
     Route: 065
     Dates: start: 20151110
  3. BI SIFROL [Concomitant]
     Active Substance: PRAMIPEXOLE
     Indication: PRODUCT USED FOR UNKNOWN INDICATION
     Dosage: 1 DF, QD
     Route: 048
     Dates: start: 20150625, end: 20151109
  4. STALEVO [Suspect]
     Active Substance: CARBIDOPA\ENTACAPONE\LEVODOPA
     Indication: PARKINSON^S DISEASE
     Dosage: 1 DF (LEVODOPA 100 MG/ CARBIDOPA 10 MG/ ENTACAPONE 100 MG), QD IN THE MORNING
     Route: 048
     Dates: start: 20150625, end: 20151109

REACTIONS (2)
  - Concomitant disease aggravated [Recovering/Resolving]
  - Postoperative ileus [Recovering/Resolving]

NARRATIVE: CASE EVENT DATE: 20151105
